FAERS Safety Report 9131679 (Version 1)
Quarter: 2013Q1

REPORT INFORMATION
  Report Type: Spontaneous
  Country: US (occurrence: US)
  Receive Date: 20130301
  Receipt Date: 20130301
  Transmission Date: 20140127
  Serious: No
  Sender: FDA-Public Use
  Company Number: US-009507513-1302USA010766

PATIENT
  Age: 40 Year
  Sex: Male

DRUGS (1)
  1. ZETIA [Suspect]
     Dosage: 10 MG, UNK
     Route: 048
     Dates: start: 201202

REACTIONS (1)
  - Myopathy [Recovered/Resolved]
